FAERS Safety Report 7723572-8 (Version None)
Quarter: 2011Q3

REPORT INFORMATION
  Report Type: 
  Country: None (occurrence: None)
  Receive Date: 20110901
  Receipt Date: 20110819
  Transmission Date: 20111222
  Serious: Yes (Other)
  Sender: FDA-Public Use
  Company Number: ES-SANOFI-AVENTIS-2011SA053109

PATIENT
  Age: 84 Year
  Sex: Female

DRUGS (1)
  1. MULTAQ [Suspect]
     Indication: ATRIAL FIBRILLATION
     Route: 048
     Dates: start: 20110708, end: 20110725

REACTIONS (5)
  - ASTHENIA [None]
  - MALAISE [None]
  - HYPERTENSION [None]
  - PALPITATIONS [None]
  - DIZZINESS [None]
